FAERS Safety Report 7784801-8 (Version None)
Quarter: 2011Q3

REPORT INFORMATION
  Report Type: 
  Country: None (occurrence: None)
  Receive Date: 20110928
  Receipt Date: 20110926
  Transmission Date: 20111222
  Serious: Yes (Hospitalization)
  Sender: FDA-Public Use
  Company Number: US-BRACCO-006594

PATIENT
  Sex: Male

DRUGS (3)
  1. ISOVUE-128 [Suspect]
     Indication: PAIN IN EXTREMITY
     Route: 037
     Dates: start: 20110803, end: 20110803
  2. ISOVUE-128 [Suspect]
     Indication: NECK PAIN
     Route: 037
     Dates: start: 20110803, end: 20110803
  3. ISOVUE-128 [Suspect]
     Indication: SPINAL MYELOGRAM
     Route: 037
     Dates: start: 20110803, end: 20110803

REACTIONS (3)
  - DYSURIA [None]
  - GASTROINTESTINAL DISORDER [None]
  - ABASIA [None]
